FAERS Safety Report 6558363-7 (Version None)
Quarter: 2010Q1

REPORT INFORMATION
  Report Type: 
  Country: None (occurrence: None)
  Receive Date: 20100129
  Receipt Date: 20100126
  Transmission Date: 20100710
  Serious: Yes (Hospitalization)
  Sender: FDA-Public Use
  Company Number: DE-MERCK-0907DEU00046

PATIENT
  Age: 75 Year
  Sex: Male
  Weight: 87 kg

DRUGS (7)
  1. ZOCOR [Suspect]
     Indication: HYPERLIPIDAEMIA
     Route: 048
     Dates: start: 20080901
  2. ASPIRIN [Suspect]
     Indication: CORONARY ARTERY DISEASE
     Route: 048
     Dates: start: 20080901
  3. PHENPROCOUMON [Suspect]
     Indication: ATRIAL FIBRILLATION
     Route: 048
     Dates: start: 20080901, end: 20081204
  4. CLOPIDOGREL BISULFATE [Suspect]
     Indication: CORONARY ARTERY DISEASE
     Route: 048
     Dates: start: 20080901, end: 20081109
  5. METOPROLOL [Concomitant]
     Indication: CORONARY ARTERY DISEASE
     Route: 048
     Dates: start: 20080901
  6. RAMIPRIL [Concomitant]
     Indication: HYPERTENSION
     Route: 048
     Dates: start: 20080901, end: 20081201
  7. RAMIPRIL [Concomitant]
     Route: 048
     Dates: start: 20081201

REACTIONS (2)
  - DRUG INTERACTION [None]
  - OESOPHAGITIS HAEMORRHAGIC [None]
